FAERS Safety Report 5822387-5 (Version None)
Quarter: 2008Q3

REPORT INFORMATION
  Report Type: 
  Country: None (occurrence: None)
  Receive Date: 20080725
  Receipt Date: 20080715
  Transmission Date: 20090109
  Serious: Yes (Death, Other)
  Sender: FDA-Public Use
  Company Number: JP-ROCHE-574785

PATIENT
  Age: 45 Year
  Sex: Male
  Weight: 43 kg

DRUGS (17)
  1. VALGANCICLOVIR HCL [Suspect]
     Route: 048
     Dates: start: 20050624
  2. AZITHROMYCIN HYDRATE [Concomitant]
     Route: 048
     Dates: start: 20050621, end: 20050701
  3. PENTAMIDINE ISETHIONATE [Concomitant]
     Route: 051
     Dates: start: 20050624, end: 20050701
  4. SULFAMETHOXAZOLE AND TRIMETHOPRIM [Concomitant]
     Dates: start: 20050601, end: 20050601
  5. ATOVAQUONE [Concomitant]
     Dates: start: 20050701, end: 20050901
  6. MICAFUNGIN [Concomitant]
     Route: 051
     Dates: start: 20050705, end: 20050701
  7. ANTIBIOTIC NOS [Concomitant]
     Dates: start: 20050716, end: 20051201
  8. ETHAMBUTOL HCL [Concomitant]
     Route: 048
     Dates: start: 20050701, end: 20050901
  9. CEFEPIME [Concomitant]
     Route: 051
     Dates: start: 20050701
  10. NEUPOGEN [Concomitant]
     Route: 051
     Dates: start: 20050701
  11. CIPROFLOXACIN [Concomitant]
     Route: 051
     Dates: start: 20050801, end: 20050801
  12. CLARITHROMYCIN [Concomitant]
     Route: 048
     Dates: start: 20050801, end: 20050901
  13. AMIKACIN SULFATE [Concomitant]
     Route: 051
     Dates: start: 20050801, end: 20050901
  14. PREDNISOLONE [Concomitant]
     Dates: start: 20050601
  15. FLUCONAZOLE [Concomitant]
     Dates: start: 20050601
  16. VORICONAZOLE [Concomitant]
     Dates: start: 20050716
  17. PENICILLIN G [Concomitant]
     Indication: RETINITIS
     Dates: start: 20050624

REACTIONS (3)
  - BRONCHOPULMONARY ASPERGILLOSIS [None]
  - NEUTROPHIL COUNT DECREASED [None]
  - STAPHYLOCOCCAL SEPSIS [None]
